FAERS Safety Report 5338047-3 (Version None)
Quarter: 2007Q2

REPORT INFORMATION
  Report Type: 
  Country: None (occurrence: None)
  Receive Date: 20070327
  Receipt Date: 20070117
  Transmission Date: 20071010
  Serious: Yes (Hospitalization, Other)
  Sender: FDA-Public Use
  Company Number: 234879

PATIENT
  Age: 56 Year
  Sex: Female

DRUGS (3)
  1. AVASTIN [Suspect]
     Indication: LUNG NEOPLASM MALIGNANT
     Dosage: 850 G,
     Dates: start: 20061220
  2. TAXOTERE [Suspect]
     Indication: LUNG NEOPLASM MALIGNANT
     Dosage: 60 MG,
     Dates: start: 20061220
  3. CARBOPLATIN [Suspect]
     Indication: LUNG NEOPLASM MALIGNANT
     Dosage: 170 MG,
     Dates: start: 20061220

REACTIONS (1)
  - CEREBROVASCULAR ACCIDENT [None]
